FAERS Safety Report 8454707-X (Version None)
Quarter: 2012Q2

REPORT INFORMATION
  Report Type: 
  Country: None (occurrence: None)
  Receive Date: 20120615
  Receipt Date: 20120615
  Transmission Date: 20120825
  Serious: Yes (Other)
  Sender: FDA-Public Use
  Company Number: None

PATIENT
  Age: 9 Year
  Sex: Female
  Weight: 46.7205 kg

DRUGS (1)
  1. LISTERINE AGENT COOL BLUE TINTING RINSE GLACIER MINT (ORAL CARE PRODUC [Suspect]
     Indication: DENTAL DISORDER PROPHYLAXIS
     Dosage: ORAL
     Route: 048

REACTIONS (2)
  - SWELLING [None]
  - GINGIVAL DISORDER [None]
